FAERS Safety Report 5409761-6 (Version None)
Quarter: 2007Q3

REPORT INFORMATION
  Report Type: 
  Country: None (occurrence: None)
  Receive Date: 20070809
  Receipt Date: 20070803
  Transmission Date: 20080115
  Serious: Yes (Other)
  Sender: FDA-Public Use
  Company Number: B0482669A

PATIENT
  Sex: Female

DRUGS (5)
  1. AVANDIA [Suspect]
     Dosage: 8MG PER DAY
     Route: 065
  2. GLUCOVANCE [Concomitant]
     Route: 065
  3. LIPITOR [Concomitant]
     Dosage: 40MG PER DAY
     Route: 065
  4. RAMIPRIL [Concomitant]
     Dosage: 10MG PER DAY
     Route: 065
  5. NITROLINGUAL [Concomitant]
     Route: 065

REACTIONS (2)
  - MYOCARDIAL INFARCTION [None]
  - PARAESTHESIA [None]
